FAERS Safety Report 8538119-6 (Version None)
Quarter: 2012Q3

REPORT INFORMATION
  Report Type: 
  Country: None (occurrence: None)
  Receive Date: 20120725
  Receipt Date: 20120606
  Transmission Date: 20120928
  Serious: Yes (Other)
  Sender: FDA-Public Use
  Company Number: PHHY2012JP049146

PATIENT
  Age: 38 Year
  Sex: Female

DRUGS (4)
  1. LEUPROLIDE ACETATE [Concomitant]
     Indication: DYSMENORRHOEA
     Route: 058
  2. VOLTAREN [Suspect]
     Indication: DYSMENORRHOEA
     Dosage: 75 MG DAILY
     Route: 048
     Dates: end: 20110705
  3. SCOPOLAMINE [Suspect]
     Indication: DYSMENORRHOEA
  4. LOXONIN [Concomitant]

REACTIONS (4)
  - HAEMORRHAGE [None]
  - DYSMENORRHOEA [None]
  - PURPURA [None]
  - PLATELET AGGREGATION ABNORMAL [None]
